FAERS Safety Report 4592158-9 (Version None)
Quarter: 2005Q1

REPORT INFORMATION
  Report Type: 
  Country: None (occurrence: None)
  Receive Date: 20050226
  Receipt Date: 20041007
  Transmission Date: 20050727
  Serious: Yes (Other)
  Sender: FDA-Public Use
  Company Number: US-MERCK-0410USA01226

PATIENT
  Age: 34 Year
  Sex: Female
  Weight: 73 kg

DRUGS (1)
  1. VIOXX [Suspect]
     Indication: COCCYDYNIA
     Route: 048
     Dates: start: 20040801, end: 20040912

REACTIONS (3)
  - ANXIETY [None]
  - CHEST PAIN [None]
  - TACHYCARDIA [None]
